FAERS Safety Report 19066945 (Version 1)
Quarter: 2021Q1

REPORT INFORMATION
  Report Type: Spontaneous
  Country: JP (occurrence: JP)
  Receive Date: 20210329
  Receipt Date: 20210329
  Transmission Date: 20210420
  Serious: Yes (Hospitalization)
  Sender: FDA-Public Use
  Company Number: JP-009507513-2103JPN002082J

PATIENT
  Age: 76 Year
  Sex: Male

DRUGS (4)
  1. AXITINIB [Concomitant]
     Active Substance: AXITINIB
     Dosage: 5 MILLIGRAM, BID
     Route: 048
     Dates: start: 20210323
  2. KEYTRUDA [Suspect]
     Active Substance: PEMBROLIZUMAB
     Indication: RENAL CELL CARCINOMA STAGE IV
     Dosage: 200 MILLIGRAM, Q3W
     Route: 041
     Dates: start: 202008, end: 202012
  3. KEYTRUDA [Suspect]
     Active Substance: PEMBROLIZUMAB
     Dosage: 400 MILLIGRAM, EVERY 6 WEEKS
     Route: 041
     Dates: start: 202101, end: 202101
  4. AXITINIB [Concomitant]
     Active Substance: AXITINIB
     Indication: RENAL CELL CARCINOMA STAGE IV
     Dosage: 5 MILLIGRAM, BID
     Route: 048
     Dates: start: 202008, end: 2021

REACTIONS (1)
  - Restlessness [Recovered/Resolved]

NARRATIVE: CASE EVENT DATE: 202101
